FAERS Safety Report 9215663 (Version 3)
Quarter: 2013Q4

REPORT INFORMATION
  Report Type: Report from Study
  Country: BY (occurrence: BY)
  Receive Date: 20130408
  Receipt Date: 20131008
  Transmission Date: 20140711
  Serious: Yes (Hospitalization)
  Sender: FDA-Public Use
  Company Number: BY-BIOGENIDEC-2012BI002965

PATIENT
  Age: 35 Year
  Sex: Female
  Weight: 53 kg

DRUGS (4)
  1. BG00012 [Suspect]
     Indication: MULTIPLE SCLEROSIS
     Dates: start: 20110718, end: 20120107
  2. ACETYLSALICYLIC ACID [Concomitant]
     Indication: HEADACHE
     Route: 048
  3. PARACETAMOL [Concomitant]
     Dates: start: 201206
  4. INTRAUTERINE DEVICE [Concomitant]
     Indication: CONTRACEPTION

REACTIONS (1)
  - Abortion missed [Recovered/Resolved]
